FAERS Safety Report 15229110 (Version 1)
Quarter: 2018Q3

REPORT INFORMATION
  Report Type: Spontaneous
  Country: TR (occurrence: TR)
  Receive Date: 20180801
  Receipt Date: 20180801
  Transmission Date: 20181010
  Serious: Yes (Other)
  Sender: FDA-Public Use
  Company Number: TR-B.I. PHARMACEUTICALS,INC./RIDGEFIELD-2018-BI-038559

PATIENT
  Sex: Male

DRUGS (6)
  1. PEXOLA [Suspect]
     Active Substance: PRAMIPEXOLE DIHYDROCHLORIDE
     Indication: NARCOLEPSY
     Route: 065
  2. MODIWAKE [Concomitant]
     Indication: NARCOLEPSY
     Route: 065
  3. MODIWAKE [Concomitant]
     Indication: RESTLESS LEGS SYNDROME
  4. EFEXOR [Concomitant]
     Active Substance: VENLAFAXINE HYDROCHLORIDE
     Indication: NARCOLEPSY
     Route: 065
  5. PEXOLA [Suspect]
     Active Substance: PRAMIPEXOLE DIHYDROCHLORIDE
     Indication: RESTLESS LEGS SYNDROME
  6. EFEXOR [Concomitant]
     Active Substance: VENLAFAXINE HYDROCHLORIDE
     Indication: RESTLESS LEGS SYNDROME

REACTIONS (1)
  - Seizure [Not Recovered/Not Resolved]
